FAERS Safety Report 6357075-2 (Version None)
Quarter: 2009Q3

REPORT INFORMATION
  Report Type: 
  Country: None (occurrence: None)
  Receive Date: 20090910
  Receipt Date: 20090901
  Transmission Date: 20100115
  Serious: Yes (Death)
  Sender: FDA-Public Use
  Company Number: TPA2009A002545

PATIENT
  Sex: Female

DRUGS (2)
  1. ULORIC [Suspect]
     Indication: GOUT
     Dosage: 40 MG, 1 IN 1 D),PER ORAL
     Route: 048
     Dates: start: 20090501, end: 20090801
  2. ULORIC [Suspect]
     Indication: HYPERURICAEMIA
     Dosage: 40 MG, 1 IN 1 D),PER ORAL
     Route: 048
     Dates: start: 20090501, end: 20090801

REACTIONS (1)
  - MYOCARDIAL INFARCTION [None]
